FAERS Safety Report 16154408 (Version 1)
Quarter: 2019Q2

REPORT INFORMATION
  Report Type: Spontaneous
  Country: JP (occurrence: JP)
  Receive Date: 20190403
  Receipt Date: 20190403
  Transmission Date: 20190711
  Serious: Yes (Other)
  Sender: FDA-Public Use
  Company Number: JP-GLAXOSMITHKLINE-JP2019JPN056444

PATIENT
  Age: 46 Year
  Sex: Female

DRUGS (1)
  1. RELVAR ELLIPTA [Suspect]
     Active Substance: FLUTICASONE FUROATE\VILANTEROL TRIFENATATE
     Indication: ASTHMA
     Dosage: 200 ?G, UNK
     Route: 055
     Dates: start: 200410

REACTIONS (2)
  - Oesophageal candidiasis [Unknown]
  - Sinusitis [Unknown]

NARRATIVE: CASE EVENT DATE: 201810
